FAERS Safety Report 6525643-0 (Version None)
Quarter: 2010Q1

REPORT INFORMATION
  Report Type: 
  Country: None (occurrence: None)
  Receive Date: 20100104
  Receipt Date: 20091228
  Transmission Date: 20100710
  Serious: Yes (Hospitalization)
  Sender: FDA-Public Use
  Company Number: US-BRISTOL-MYERS SQUIBB COMPANY-14913123

PATIENT
  Age: 55 Year
  Sex: Male

DRUGS (3)
  1. CISPLATIN [Suspect]
     Indication: OESOPHAGEAL CARCINOMA
  2. PACLITAXEL [Suspect]
     Indication: OESOPHAGEAL CARCINOMA
  3. FLUOROURACIL [Suspect]
     Indication: OESOPHAGEAL CARCINOMA

REACTIONS (2)
  - HYPOMAGNESAEMIA [None]
  - RENAL SALT-WASTING SYNDROME [None]
